FAERS Safety Report 4354249-7 (Version None)
Quarter: 2004Q2

REPORT INFORMATION
  Report Type: 
  Country: None (occurrence: None)
  Receive Date: 20040506
  Receipt Date: 20040109
  Transmission Date: 20050107
  Serious: Yes (Death)
  Sender: FDA-Public Use
  Company Number: CH-ROCHE-355637

PATIENT
  Age: 80 Year
  Sex: Female
  Weight: 63 kg

DRUGS (2)
  1. XELODA [Suspect]
     Route: 048
     Dates: start: 20031117, end: 20031130
  2. BRIVEX [Interacting]
     Indication: HERPES ZOSTER
     Route: 048
     Dates: start: 20031117, end: 20031128

REACTIONS (11)
  - AGRANULOCYTOSIS [None]
  - COMA [None]
  - DIARRHOEA [None]
  - DRUG INTERACTION [None]
  - MUCOSAL INFLAMMATION [None]
  - RENAL IMPAIRMENT [None]
  - SHOCK [None]
  - THROMBOCYTOPENIA [None]
  - TONGUE HAEMORRHAGE [None]
  - TOXIC EPIDERMAL NECROLYSIS [None]
  - VOMITING [None]
